FAERS Safety Report 6165459-0 (Version None)
Quarter: 2009Q2

REPORT INFORMATION
  Report Type: 
  Country: None (occurrence: None)
  Receive Date: 20090421
  Receipt Date: 20090421
  Transmission Date: 20091009
  Serious: Yes (Hospitalization)
  Sender: FDA-Public Use
  Company Number: None

PATIENT
  Sex: Male
  Weight: 84.9 kg

DRUGS (1)
  1. SUNITINIB 37.5 MG TAB PFIZER [Suspect]
     Indication: MALIGNANT MELANOMA
     Dosage: 37.5 MG PO QD
     Route: 048
     Dates: start: 20090314

REACTIONS (8)
  - ABDOMINAL PAIN [None]
  - FEELING ABNORMAL [None]
  - HEADACHE [None]
  - MYALGIA [None]
  - NAUSEA [None]
  - PYREXIA [None]
  - SINUSITIS [None]
  - VOMITING [None]
